FAERS Safety Report 11914160 (Version 3)
Quarter: 2016Q2

REPORT INFORMATION
  Report Type: Spontaneous
  Country: CA (occurrence: CA)
  Receive Date: 20160113
  Receipt Date: 20160509
  Transmission Date: 20160815
  Serious: Yes (Other)
  Sender: FDA-Public Use
  Company Number: CA-JNJFOC-20160100302

PATIENT
  Sex: Male

DRUGS (3)
  1. TYLENOL ARTHRITIS PAIN [Suspect]
     Active Substance: ACETAMINOPHEN
     Indication: JOINT STIFFNESS
     Dosage: AS NEEDED
     Route: 065
  2. XELJANZ [Suspect]
     Active Substance: TOFACITINIB CITRATE
     Indication: RHEUMATOID ARTHRITIS
     Route: 048
     Dates: start: 20150812, end: 20151229
  3. TYLENOL ARTHRITIS PAIN [Suspect]
     Active Substance: ACETAMINOPHEN
     Indication: PAIN
     Dosage: AS NEEDED
     Route: 065

REACTIONS (30)
  - Visual acuity reduced [Not Recovered/Not Resolved]
  - Joint swelling [Not Recovered/Not Resolved]
  - Scar pain [Not Recovered/Not Resolved]
  - Discomfort [Not Recovered/Not Resolved]
  - Hypertension [Unknown]
  - Dyspepsia [Recovering/Resolving]
  - Back pain [Recovering/Resolving]
  - Rhinalgia [Unknown]
  - Rhinorrhoea [Unknown]
  - Productive cough [Not Recovered/Not Resolved]
  - Arthropathy [Not Recovered/Not Resolved]
  - Drug effect variable [Not Recovered/Not Resolved]
  - Diplopia [Not Recovered/Not Resolved]
  - Malaise [Not Recovered/Not Resolved]
  - Myalgia [Recovering/Resolving]
  - Pulmonary mass [Not Recovered/Not Resolved]
  - Condition aggravated [Unknown]
  - Spondylitis [Not Recovered/Not Resolved]
  - Blood potassium increased [Not Recovered/Not Resolved]
  - Chest pain [Unknown]
  - Dizziness [Unknown]
  - Cataract [Not Recovered/Not Resolved]
  - Muscle spasms [Not Recovered/Not Resolved]
  - Dysgeusia [Not Recovered/Not Resolved]
  - Lower respiratory tract infection [Unknown]
  - Burning sensation [Unknown]
  - Peripheral swelling [Unknown]
  - Skin disorder [Recovering/Resolving]
  - Headache [Not Recovered/Not Resolved]
  - Cough [Not Recovered/Not Resolved]

NARRATIVE: CASE EVENT DATE: 2015
